FAERS Safety Report 4361243-9 (Version None)
Quarter: 2004Q2

REPORT INFORMATION
  Report Type: 
  Country: None (occurrence: None)
  Receive Date: 20040517
  Receipt Date: 20040504
  Transmission Date: 20050107
  Serious: No
  Sender: FDA-Public Use
  Company Number: 04P-167-0259625-00

PATIENT
  Age: 29 Year
  Sex: Female

DRUGS (7)
  1. VALPROATE SODIUM [Suspect]
     Indication: DRUG USE FOR UNKNOWN INDICATION
     Dosage: 500 MG, 2 IN 1 D  ;  INCREASED DOSE
  2. CLOZAPINE [Suspect]
     Indication: SCHIZOPHRENIA
     Dosage: 275 MG, 1 IN 1 D, PER ORAL;  200 MG, 1 IN 1 D, PER ORAL
     Route: 048
     Dates: start: 20000825
  3. VENLAFAXINE [Suspect]
     Indication: DRUG USE FOR UNKNOWN INDICATION
     Dosage: 150 MG, 4 IN 1 D
  4. DESMOPRESSIN [Concomitant]
  5. METFORMIN HCL [Concomitant]
  6. GLICLAZIDE [Concomitant]
  7. METHYLCELLULOSE [Concomitant]

REACTIONS (5)
  - DIABETES MELLITUS INADEQUATE CONTROL [None]
  - ELECTROCARDIOGRAM QT PROLONGED [None]
  - HYPERGLYCAEMIA [None]
  - PAIN [None]
  - PHARYNGOLARYNGEAL PAIN [None]
